FAERS Safety Report 24989498 (Version 1)
Quarter: 2025Q1

REPORT INFORMATION
  Report Type: Spontaneous
  Country: NO (occurrence: NO)
  Receive Date: 20250220
  Receipt Date: 20250220
  Transmission Date: 20250409
  Serious: No
  Sender: ALEXION PHARMACEUTICALS
  Company Number: None

PATIENT
  Age: 49 Year
  Weight: 83 kg

DRUGS (3)
  1. NEXIUM [Suspect]
     Active Substance: ESOMEPRAZOLE MAGNESIUM
     Indication: Helicobacter infection
     Dosage: 40 MILLIGRAM, QD
  2. AMOXICILLIN [Suspect]
     Active Substance: AMOXICILLIN
     Indication: Helicobacter infection
     Dosage: 500 MILLIGRAM, Q8H
     Route: 065
  3. FLAGYL [Suspect]
     Active Substance: METRONIDAZOLE\METRONIDAZOLE HYDROCHLORIDE
     Indication: Helicobacter infection
     Dosage: 400 MILLIGRAM, Q8H
     Route: 065

REACTIONS (15)
  - Gait disturbance [Unknown]
  - Muscle twitching [Recovering/Resolving]
  - Chills [Recovering/Resolving]
  - Myopia [Unknown]
  - Daydreaming [Recovered/Resolved]
  - Tinnitus [Unknown]
  - Lethargy [Recovered/Resolved]
  - Ear pain [Recovering/Resolving]
  - Eye pain [Recovering/Resolving]
  - Diarrhoea [Unknown]
  - Dizziness [Unknown]
  - Erythema [Recovered/Resolved]
  - Headache [Unknown]
  - Vomiting [Recovered/Resolved]
  - Depressed mood [Unknown]
